FAERS Safety Report 18505089 (Version 1)
Quarter: 2020Q4

REPORT INFORMATION
  Report Type: Report from Study
  Country: CN (occurrence: CN)
  Receive Date: 20201116
  Receipt Date: 20201116
  Transmission Date: 20210114
  Serious: Yes (Other)
  Sender: FDA-Public Use
  Company Number: CN-BRISTOL-MYERS SQUIBB COMPANY-BMS-2020-094134

PATIENT
  Age: 66 Year
  Sex: Female

DRUGS (1)
  1. NIVOLUMAB [Suspect]
     Active Substance: NIVOLUMAB
     Indication: GASTRIC CANCER
     Dosage: 170 MILLIGRAM, Q2WK
     Route: 042
     Dates: start: 20200824

REACTIONS (3)
  - Intestinal obstruction [Unknown]
  - Asthenia [Unknown]
  - Cyst [Unknown]

NARRATIVE: CASE EVENT DATE: 202010
